FAERS Safety Report 7884393-9 (Version None)
Quarter: 2011Q4

REPORT INFORMATION
  Report Type: 
  Country: None (occurrence: None)
  Receive Date: 20111102
  Receipt Date: 20111024
  Transmission Date: 20120403
  Serious: Yes (Other)
  Sender: FDA-Public Use
  Company Number: CA-JNJFOC-20111011223

PATIENT
  Sex: Female
  Weight: 85.4 kg

DRUGS (16)
  1. REMICADE [Suspect]
     Indication: PSORIATIC ARTHROPATHY
     Route: 042
     Dates: start: 20110608
  2. AMITRIPTYLINE HCL [Concomitant]
  3. CONJUGATED LINOLEIC ACID [Concomitant]
  4. FISH OIL [Concomitant]
  5. GLUCOSAMINE [Concomitant]
  6. METHOTREXATE [Concomitant]
  7. MORPHINE [Concomitant]
  8. PGX GLUCOSE BALANCE [Concomitant]
  9. ASCORBIC ACID [Concomitant]
  10. NAPROSYN [Concomitant]
  11. VITAMIN D [Concomitant]
  12. ACTONEL [Concomitant]
  13. FOLIC ACID [Concomitant]
  14. TRAMADOL HYDROCHLORIDE/ACETAMINOPHEN [Concomitant]
  15. E VITAMIN [Concomitant]
  16. IRON [Concomitant]

REACTIONS (1)
  - SHOULDER ARTHROPLASTY [None]
